FAERS Safety Report 13569066 (Version 1)
Quarter: 2017Q2

REPORT INFORMATION
  Report Type: Spontaneous
  Country: US (occurrence: US)
  Receive Date: 20170522
  Receipt Date: 20170522
  Transmission Date: 20170830
  Serious: No
  Sender: FDA-Public Use
  Company Number: US-PFIZER INC-2017171331

PATIENT
  Age: 62 Year
  Sex: Male

DRUGS (1)
  1. ZOLOFT [Suspect]
     Active Substance: SERTRALINE HYDROCHLORIDE
     Indication: ARTHRALGIA
     Dosage: UNK
     Dates: start: 20170222, end: 201703

REACTIONS (3)
  - Product use in unapproved indication [Unknown]
  - Ejaculation failure [Recovered/Resolved]
  - Apathy [Recovered/Resolved]

NARRATIVE: CASE EVENT DATE: 20170311
